FAERS Safety Report 9193966 (Version 2)
Quarter: 2013Q2

REPORT INFORMATION
  Report Type: Report from Study
  Country: MX (occurrence: MX)
  Receive Date: 20130327
  Receipt Date: 20130422
  Transmission Date: 20140414
  Serious: Yes (Hospitalization)
  Sender: FDA-Public Use
  Company Number: PHHY2013MX029859

PATIENT
  Age: 83 Year
  Sex: Female

DRUGS (5)
  1. DIOVAN [Suspect]
     Indication: HYPERTENSION
     Dosage: 80 MG, DAILY
     Route: 048
     Dates: start: 201109
  2. DIOVAN [Suspect]
     Dosage: 80 MG(40 MG IN THE MORNING AND 40 MG IN THE NIGHT), DAILY
     Route: 048
  3. DIOVAN [Suspect]
     Dosage: 40 MG, Q12H
     Route: 048
     Dates: start: 20130205
  4. ATEMPERATOR//VALPROIC ACID [Concomitant]
     Indication: CONVULSION
     Dosage: 1 DF, EVERY 8 HOURS
     Dates: start: 201302
  5. EVISTA [Concomitant]
     Indication: MEMORY IMPAIRMENT
     Dosage: 1 DF, EVERY 24 HOURS
     Dates: start: 201302

REACTIONS (5)
  - Convulsion [Recovered/Resolved]
  - Electrolyte imbalance [Recovered/Resolved]
  - Anxiety [Not Recovered/Not Resolved]
  - Blood pressure decreased [Recovered/Resolved]
  - Blood pressure increased [Recovered/Resolved]
